FAERS Safety Report 5214965-1 (Version None)
Quarter: 2006Q4

REPORT INFORMATION
  Report Type: 
  Country: None (occurrence: None)
  Receive Date: 20061108
  Receipt Date: 20060918
  Transmission Date: 20070319
  Serious: Yes (Other)
  Sender: FDA-Public Use
  Company Number: US200606006270

PATIENT
  Age: 21 Year
  Sex: Female

DRUGS (3)
  1. FLUOXETINE HCL [Suspect]
     Indication: PREMENSTRUAL SYNDROME
     Dosage: 20 MG, DAILY (1/D)
     Dates: start: 20060313, end: 20060330
  2. LEXAPRO /USA/ (ESCITALOPRAM) [Concomitant]
  3. XANAX /USA/ (ALPRAZOLAM) [Concomitant]

REACTIONS (15)
  - ANXIETY [None]
  - DEPRESSION [None]
  - DISABILITY [None]
  - DRUG WITHDRAWAL SYNDROME [None]
  - HERPES ZOSTER [None]
  - HYPERSENSITIVITY [None]
  - JOINT LOCK [None]
  - MUSCULOSKELETAL PAIN [None]
  - MYALGIA [None]
  - NAUSEA [None]
  - PANIC REACTION [None]
  - PARAESTHESIA [None]
  - PHOBIA [None]
  - SINUS DISORDER [None]
  - SUICIDAL IDEATION [None]
